FAERS Safety Report 21316140 (Version 1)
Quarter: 2022Q3

REPORT INFORMATION
  Report Type: Spontaneous
  Country: US (occurrence: US)
  Receive Date: 20220910
  Receipt Date: 20220910
  Transmission Date: 20221027
  Serious: No
  Sender: FDA-Public Use
  Company Number: US-UNITED THERAPEUTICS-UNT-2022-020499

PATIENT
  Sex: Female

DRUGS (2)
  1. REMODULIN [Suspect]
     Active Substance: TREPROSTINIL
     Indication: Pulmonary arterial hypertension
     Dosage: UNK, CONTINUING
     Route: 058
     Dates: start: 20220719
  2. REMODULIN [Suspect]
     Active Substance: TREPROSTINIL
     Dosage: 0.01484 ?G/KG, (AT A RATE OF 25 MCQ/HOUR), CONTINUING
     Route: 058
     Dates: start: 2022

REACTIONS (8)
  - Device leakage [Unknown]
  - Device wireless communication issue [Unknown]
  - Frustration tolerance decreased [Unknown]
  - Device failure [Unknown]
  - Wrong technique in device usage process [Unknown]
  - Device issue [Unknown]
  - Device temperature issue [Unknown]
  - Device failure [Unknown]

NARRATIVE: CASE EVENT DATE: 20220101
